FAERS Safety Report 17353474 (Version 1)
Quarter: 2020Q1

REPORT INFORMATION
  Report Type: Spontaneous
  Country: US (occurrence: US)
  Receive Date: 20200131
  Receipt Date: 20200131
  Transmission Date: 20200409
  Serious: No
  Sender: FDA-Public Use
  Company Number: US-JNJFOC-20200124837

PATIENT
  Sex: Male
  Weight: 86.26 kg

DRUGS (1)
  1. MENS ROGAINE [Suspect]
     Active Substance: MINOXIDIL
     Indication: ALOPECIA
     Dosage: HALF A CAPFUL TWICE DAILY
     Route: 061

REACTIONS (3)
  - Dyspnoea [Recovering/Resolving]
  - Visual impairment [Recovered/Resolved]
  - Dizziness [Recovering/Resolving]
